FAERS Safety Report 13592097 (Version 1)
Quarter: 2017Q2

REPORT INFORMATION
  Report Type: Spontaneous
  Country: VE (occurrence: VE)
  Receive Date: 20170530
  Receipt Date: 20170530
  Transmission Date: 20170830
  Serious: Yes (Death, Other)
  Sender: FDA-Public Use
  Company Number: PHHY2017VE070544

PATIENT
  Sex: Female
  Weight: 64 kg

DRUGS (10)
  1. CONCORD 693 [Concomitant]
     Indication: CARDIAC DISORDER
     Route: 065
  2. ATORVASTATIN [Concomitant]
     Active Substance: ATORVASTATIN
     Indication: BLOOD CHOLESTEROL INCREASED
     Route: 065
  3. ANTIFOM [Concomitant]
     Indication: FLATULENCE
     Dosage: UNK UNK, PRN
     Route: 065
  4. BUMELEX [Concomitant]
     Indication: RENAL DISORDER
     Dosage: 1 MG, QD
     Route: 065
  5. AROMASIN [Concomitant]
     Active Substance: EXEMESTANE
     Indication: PRODUCT USED FOR UNKNOWN INDICATION
     Route: 065
  6. SPIRONOLACTONE. [Concomitant]
     Active Substance: SPIRONOLACTONE
     Indication: BLOOD POTASSIUM
     Route: 065
  7. LOSARTAN POTASSIUM. [Concomitant]
     Active Substance: LOSARTAN POTASSIUM
     Indication: BLOOD PRESSURE ABNORMAL
     Dosage: 50 MG, QD
     Route: 065
  8. ASPIRIN. [Concomitant]
     Active Substance: ASPIRIN
     Indication: CARDIAC DISORDER
     Dosage: 81 MG, QD
     Route: 065
  9. AFINITOR [Suspect]
     Active Substance: EVEROLIMUS
     Indication: BREAST CANCER
     Dosage: 2 DF, QD
     Route: 048
  10. PANTOPRAZOLE [Concomitant]
     Active Substance: PANTOPRAZOLE
     Indication: GASTRIC DISORDER
     Route: 065

REACTIONS (7)
  - Hypertensive heart disease [Fatal]
  - Pulmonary calcification [Unknown]
  - Acute pulmonary oedema [Fatal]
  - Respiratory arrest [Fatal]
  - Hypertension [Fatal]
  - Metastases to lung [Unknown]
  - Cardiogenic shock [Fatal]
